FAERS Safety Report 23229420 (Version 1)
Quarter: 2023Q4

REPORT INFORMATION
  Report Type: Spontaneous
  Country: US (occurrence: US)
  Receive Date: 20231127
  Receipt Date: 20231127
  Transmission Date: 20240110
  Serious: Yes (Other)
  Sender: FDA-Public Use
  Company Number: US-drreddys-SPO/USA/23/0187267

PATIENT
  Age: 23 Year
  Sex: Male
  Weight: 66 kg

DRUGS (16)
  1. PROPOFOL [Suspect]
     Active Substance: PROPOFOL
     Indication: Maintenance of anaesthesia
     Dosage: 300 MG IN DIVIDED DOSES
     Route: 042
  2. PROPOFOL [Suspect]
     Active Substance: PROPOFOL
     Indication: Induction of anaesthesia
  3. PROPOFOL [Suspect]
     Active Substance: PROPOFOL
     Dosage: INCREASING THE PROPOFOL INFUSION RATE
  4. PROPOFOL [Suspect]
     Active Substance: PROPOFOL
     Dosage: BOLUS
  5. MELOXICAM [Concomitant]
     Active Substance: MELOXICAM
     Indication: Pain
  6. ROCURONIUM [Concomitant]
     Active Substance: ROCURONIUM BROMIDE
     Indication: Induction of anaesthesia
     Route: 042
  7. LIDOCAINE [Concomitant]
     Active Substance: LIDOCAINE
     Indication: Maintenance of anaesthesia
     Dosage: 2 MG.KG-1.HR-1
     Route: 042
  8. LIDOCAINE [Concomitant]
     Active Substance: LIDOCAINE
     Indication: Induction of anaesthesia
     Route: 042
  9. ACETAMINOPHEN [Concomitant]
     Active Substance: ACETAMINOPHEN
     Indication: Premedication
  10. MAGNESIUM [Concomitant]
     Active Substance: MAGNESIUM
     Indication: Maintenance of anaesthesia
     Dosage: 6 MG.KG-1.HR-1 FOLLOWING A 30 MG.KG-1 BOLUS OVER 30 MIN
     Route: 042
  11. MAGNESIUM [Concomitant]
     Active Substance: MAGNESIUM
     Dosage: 6 MG.KG-1.HR-1 FOLLOWING A 30 MG.KG-1 BOLUS OVER 30 MIN
  12. KETAMINE [Concomitant]
     Active Substance: KETAMINE
     Indication: Maintenance of anaesthesia
     Dosage: 3 MCG.KG-1.MIN-1
     Route: 042
  13. FENTANYL [Concomitant]
     Active Substance: FENTANYL\FENTANYL CITRATE
     Indication: Induction of anaesthesia
     Route: 042
  14. FENTANYL [Concomitant]
     Active Substance: FENTANYL\FENTANYL CITRATE
     Indication: Maintenance of anaesthesia
     Dosage: INTERMITTENT BOLUSES
  15. FENTANYL [Concomitant]
     Active Substance: FENTANYL\FENTANYL CITRATE
     Dosage: BOLUS
  16. MIDAZOLAM [Concomitant]
     Active Substance: MIDAZOLAM
     Indication: Premedication

REACTIONS (1)
  - Myoclonus [Recovered/Resolved]
